FAERS Safety Report 21229338 (Version 1)
Quarter: 2022Q3

REPORT INFORMATION
  Report Type: Report from Study
  Country: CO (occurrence: CO)
  Receive Date: 20220818
  Receipt Date: 20220818
  Transmission Date: 20221027
  Serious: Yes (Hospitalization, Other)
  Sender: FDA-Public Use
  Company Number: CO-ABBVIE-22K-036-4503780-00

PATIENT
  Sex: Male
  Weight: 23 kg

DRUGS (3)
  1. HUMIRA [Suspect]
     Active Substance: ADALIMUMAB
     Indication: Psoriasis
     Route: 058
     Dates: start: 20220107
  2. LEVOTHYROXINE [Concomitant]
     Active Substance: LEVOTHYROXINE
     Indication: Hypothyroidism
     Route: 048
     Dates: end: 202207
  3. DESONIDE [Concomitant]
     Active Substance: DESONIDE
     Indication: Hypersensitivity
     Route: 061
     Dates: start: 2021, end: 202207

REACTIONS (12)
  - Cellulitis [Recovered/Resolved]
  - Hypothyroidism [Not Recovered/Not Resolved]
  - Immune system disorder [Recovering/Resolving]
  - Eye disorder [Recovered/Resolved]
  - Eye irritation [Recovered/Resolved]
  - Mouth breathing [Not Recovered/Not Resolved]
  - Hyperthyroidism [Not Recovered/Not Resolved]
  - Ocular hyperaemia [Recovered/Resolved]
  - Ocular hyperaemia [Recovered/Resolved]
  - Eye swelling [Recovered/Resolved]
  - Stress [Recovered/Resolved]
  - Platelet count decreased [Recovering/Resolving]

NARRATIVE: CASE EVENT DATE: 20220101
